FAERS Safety Report 6935653-7 (Version None)
Quarter: 2010Q3

REPORT INFORMATION
  Report Type: 
  Country: None (occurrence: None)
  Receive Date: 20100823
  Receipt Date: 20100813
  Transmission Date: 20110219
  Serious: Yes (Other)
  Sender: FDA-Public Use
  Company Number: US-JNJFOC-20100805313

PATIENT
  Sex: Female
  Weight: 72.58 kg

DRUGS (4)
  1. FENTANYL CITRATE [Suspect]
     Indication: NECK PAIN
     Route: 062
  2. FENTANYL CITRATE [Suspect]
     Route: 062
  3. LAMICTAL [Concomitant]
     Indication: TINNITUS
     Route: 048
  4. SINGULAIR [Concomitant]
     Indication: MULTIPLE ALLERGIES
     Route: 048

REACTIONS (2)
  - GASTRIC ULCER [None]
  - WRONG TECHNIQUE IN DRUG USAGE PROCESS [None]
